FAERS Safety Report 23392356 (Version 1)
Quarter: 2024Q1

REPORT INFORMATION
  Report Type: Spontaneous
  Country: US (occurrence: US)
  Receive Date: 20240111
  Receipt Date: 20240111
  Transmission Date: 20240410
  Serious: No
  Sender: FDA-Public Use
  Company Number: US-REGENERON PHARMACEUTICALS, INC.-2023-079725

PATIENT
  Age: 60 Year
  Sex: Female

DRUGS (1)
  1. EYLEA [Suspect]
     Active Substance: AFLIBERCEPT
     Indication: Eye oedema
     Dosage: ONCE A MONTH, LEFT EYE, FORMULATION: UNKNOWN
     Route: 031
     Dates: start: 20220928

REACTIONS (6)
  - Off label use [Unknown]
  - Visual impairment [Unknown]
  - Visual field defect [Unknown]
  - Metamorphopsia [Unknown]
  - Ocular hyperaemia [Unknown]
  - Vision blurred [Unknown]

NARRATIVE: CASE EVENT DATE: 20220101
